FAERS Safety Report 12464792 (Version 2)
Quarter: 2016Q2

REPORT INFORMATION
  Report Type: Spontaneous
  Country: US (occurrence: US)
  Receive Date: 20160614
  Receipt Date: 20160616
  Transmission Date: 20160815
  Serious: Yes (Other)
  Sender: FDA-Public Use
  Company Number: US-PFIZER INC-2016293188

PATIENT
  Age: 49 Year
  Sex: Female

DRUGS (9)
  1. KLONOPIN [Concomitant]
     Active Substance: CLONAZEPAM
     Dosage: 1 MG, UNK
     Route: 048
  2. LEVOTHYROXINE. [Concomitant]
     Active Substance: LEVOTHYROXINE
     Indication: HYPOTHYROIDISM
     Dosage: 150 UG, 1X/DAY, PILL
     Route: 048
  3. OMEPRAZOLE. [Concomitant]
     Active Substance: OMEPRAZOLE
     Dosage: 20 MG, 2X/DAY
     Route: 048
  4. ASPIRIN. [Concomitant]
     Active Substance: ASPIRIN
  5. HYSINGLA ER [Concomitant]
     Active Substance: HYDROCODONE BITARTRATE
     Dosage: 60 MG, 1X/DAY
  6. GABAPENTIN. [Suspect]
     Active Substance: GABAPENTIN
     Indication: NEURALGIA
     Dosage: 300 MG, 3X/DAY
     Route: 048
     Dates: end: 20160519
  7. OXYCODONE [Concomitant]
     Active Substance: OXYCODONE
     Indication: PAIN
     Dosage: UNK UNK, 3X/DAY
     Route: 048
     Dates: start: 201112
  8. PAXIL [Concomitant]
     Active Substance: PAROXETINE HYDROCHLORIDE
     Dosage: 20 MG, 1X/DAY, PILL
     Route: 048
  9. HYSINGLA ER [Concomitant]
     Active Substance: HYDROCODONE BITARTRATE
     Indication: PAIN
     Dosage: 40 MG, 1X/DAY
     Dates: start: 20160124

REACTIONS (36)
  - Rash generalised [Not Recovered/Not Resolved]
  - Anxiety [Not Recovered/Not Resolved]
  - Stomatitis [Unknown]
  - Activities of daily living impaired [Unknown]
  - Urinary retention [Unknown]
  - Vision blurred [Unknown]
  - Skin discolouration [Unknown]
  - Glossodynia [Unknown]
  - Incoherent [Unknown]
  - Mental impairment [Unknown]
  - Headache [Not Recovered/Not Resolved]
  - Blood urine present [Unknown]
  - Pharyngeal oedema [Unknown]
  - Hypoaesthesia [Recovered/Resolved]
  - Fatigue [Unknown]
  - Homicidal ideation [Recovered/Resolved]
  - Nausea [Not Recovered/Not Resolved]
  - Chest pain [Recovered/Resolved]
  - Insomnia [Unknown]
  - Oropharyngeal pain [Unknown]
  - Muscle strain [Unknown]
  - Aphasia [Unknown]
  - Syncope [Unknown]
  - Tunnel vision [Unknown]
  - Dyspnoea [Unknown]
  - Crying [Unknown]
  - Tonsillar hypertrophy [Unknown]
  - Suicidal ideation [Recovered/Resolved]
  - Hypersensitivity [Unknown]
  - Swollen tongue [Unknown]
  - Renal cyst [Unknown]
  - Microsleep [Not Recovered/Not Resolved]
  - Dysgraphia [Unknown]
  - Hypoaesthesia oral [Unknown]
  - Bladder disorder [Unknown]
  - Product use issue [Unknown]

NARRATIVE: CASE EVENT DATE: 2016
